FAERS Safety Report 10783300 (Version 2)
Quarter: 2016Q1

REPORT INFORMATION
  Report Type: Spontaneous
  Country: US (occurrence: US)
  Receive Date: 20150210
  Receipt Date: 20160218
  Transmission Date: 20160525
  Serious: No
  Sender: FDA-Public Use
  Company Number: US-GLAXOSMITHKLINE-A1088551A

PATIENT
  Sex: Female
  Weight: 84 kg

DRUGS (11)
  1. NICORETTE [Suspect]
     Active Substance: NICOTINE
     Indication: PRODUCT USED FOR UNKNOWN INDICATION
     Dosage: UNK
  2. ISOSORBIDE DINITRATE TABLET [Concomitant]
     Indication: CHEST DISCOMFORT
  3. TRAMADOL HCL TABLET [Concomitant]
     Indication: PAIN
     Dosage: 50 MG, TID
  4. NICORETTE [Suspect]
     Active Substance: NICOTINE
     Indication: PRODUCT USED FOR UNKNOWN INDICATION
     Dosage: UNK
     Route: 002
  5. PLAVIX [Concomitant]
     Active Substance: CLOPIDOGREL BISULFATE
     Indication: ANTICOAGULANT THERAPY
     Dosage: 75 MG, QD
  6. GABAPENTIN. [Concomitant]
     Active Substance: GABAPENTIN
     Indication: BURNING SENSATION
     Dosage: 300 MG, TID
  7. OMEPRAZOLE TABLET [Concomitant]
     Indication: ABDOMINAL PAIN UPPER
     Dosage: 40 MG, QD
  8. ISOSORBIDE DINITRATE TABLET [Concomitant]
     Indication: CARDIAC DISORDER
     Dosage: 30 MG, UNK
  9. ENALAPRIL TABLET [Concomitant]
     Indication: HYPERTENSION
     Dosage: UNK
  10. NICORETTE [Suspect]
     Active Substance: NICOTINE
     Indication: PRODUCT USED FOR UNKNOWN INDICATION
     Dosage: UNK
     Route: 002
  11. METOPROLOL. [Concomitant]
     Active Substance: METOPROLOL
     Indication: HYPERTENSION
     Dosage: 25 MG, UNK

REACTIONS (2)
  - Drug ineffective [Unknown]
  - Expired product administered [Unknown]
